FAERS Safety Report 8538696-5 (Version None)
Quarter: 2012Q3

REPORT INFORMATION
  Report Type: 
  Country: None (occurrence: None)
  Receive Date: 20120726
  Receipt Date: 20120720
  Transmission Date: 20120928
  Serious: Yes (Hospitalization)
  Sender: FDA-Public Use
  Company Number: US-BAYER-2012-015796

PATIENT
  Age: 28 Year
  Sex: Female
  Weight: 111.11 kg

DRUGS (2)
  1. YASMIN [Suspect]
     Indication: ACNE
     Dosage: UNK
     Dates: start: 20080301, end: 20100601
  2. DROSPIRENONE AND ETHINYL ESTRADIOL [Suspect]
     Indication: ACNE
     Dosage: UNK
     Dates: start: 20080301, end: 20100601

REACTIONS (5)
  - BILIARY DYSKINESIA [None]
  - PAIN [None]
  - MENTAL DISORDER [None]
  - GALLBLADDER DISORDER [None]
  - INJURY [None]
